FAERS Safety Report 8596385-5 (Version None)
Quarter: 2012Q3

REPORT INFORMATION
  Report Type: 
  Country: None (occurrence: None)
  Receive Date: 20120815
  Receipt Date: 20120810
  Transmission Date: 20120928
  Serious: Yes (Hospitalization, Other)
  Sender: FDA-Public Use
  Company Number: US-PFIZER INC-2008073730

PATIENT
  Age: 43 Year
  Sex: Male
  Weight: 99.32 kg

DRUGS (7)
  1. FLEXERIL [Suspect]
     Dates: start: 20080101, end: 20080101
  2. AMITRIPTYLINE HCL [Suspect]
     Indication: NEUROPATHY PERIPHERAL
     Route: 048
     Dates: start: 20080801
  3. ASPIRIN [Concomitant]
     Dosage: 81 MG, UNK
  4. NEURONTIN [Suspect]
     Dosage: 2400 MG, 2X/DAY
     Dates: start: 20000101
  5. METOCLOPRAMIDE [Concomitant]
     Dosage: 10 MG, 2X/DAY
  6. NEURONTIN [Suspect]
     Indication: NEUROPATHY PERIPHERAL
     Dosage: 1800 MG, 2X/DAY
     Route: 048
  7. METOPROLOL [Concomitant]
     Dosage: UNK

REACTIONS (46)
  - DRUG INEFFECTIVE [None]
  - PAIN [None]
  - OVERDOSE [None]
  - PARAESTHESIA [None]
  - EYE PAIN [None]
  - SELF-INJURIOUS IDEATION [None]
  - MUSCLE SPASMS [None]
  - MEMORY IMPAIRMENT [None]
  - LOSS OF CONSCIOUSNESS [None]
  - CONVULSION [None]
  - NEOPLASM SKIN [None]
  - HYPERTENSION [None]
  - SOMNOLENCE [None]
  - ANGER [None]
  - VISION BLURRED [None]
  - LACERATION [None]
  - NEUROPATHY PERIPHERAL [None]
  - ASTHENIA [None]
  - PANIC ATTACK [None]
  - PAIN IN EXTREMITY [None]
  - DYSGEUSIA [None]
  - FEELING ABNORMAL [None]
  - FEELING HOT [None]
  - BRADYPHRENIA [None]
  - IRRITABILITY [None]
  - CARDIAC OPERATION [None]
  - TUNNEL VISION [None]
  - MUSCULOSKELETAL STIFFNESS [None]
  - ANXIETY [None]
  - DYSARTHRIA [None]
  - MOBILITY DECREASED [None]
  - HYPERHIDROSIS [None]
  - BURNING SENSATION [None]
  - DIZZINESS [None]
  - HEADACHE [None]
  - HYPERMETROPIA [None]
  - WITHDRAWAL SYNDROME [None]
  - DEPRESSION [None]
  - FALL [None]
  - HOT FLUSH [None]
  - CHEST PAIN [None]
  - MUSCULOSKELETAL PAIN [None]
  - CONFUSIONAL STATE [None]
  - DYSPHEMIA [None]
  - IMPAIRED DRIVING ABILITY [None]
  - THINKING ABNORMAL [None]
